FAERS Safety Report 9000147 (Version 3)
Quarter: 2013Q1

REPORT INFORMATION
  Report Type: Report from Study
  Country: US (occurrence: US)
  Receive Date: 20130102
  Receipt Date: 20130308
  Transmission Date: 20140127
  Serious: No
  Sender: FDA-Public Use
  Company Number: US-VERTEX PHARMACEUTICALS INC.-2012-026780

PATIENT
  Age: 58 None
  Sex: Male
  Weight: 70 kg

DRUGS (7)
  1. VX-950 (TELAPREVIR) [Suspect]
     Indication: HEPATITIS C
     Dosage: 750 MG, TID
     Route: 048
     Dates: start: 20120903, end: 201212
  2. PEGASYS [Suspect]
     Indication: HEPATITIS C
     Dosage: 180 ?G, QW
     Route: 058
     Dates: start: 20120903
  3. RIBAVIRIN [Suspect]
     Indication: HEPATITIS C
     Dosage: 600 MG, BID
     Route: 048
     Dates: start: 20120903
  4. PRILOSEC [Concomitant]
     Dosage: 20 MG, QD
     Route: 048
  5. DIOVAN [Concomitant]
     Dosage: 80 MG, QD
  6. LEVOTHYROXINE [Concomitant]
     Dosage: UNK, QD
  7. LORATADINE [Concomitant]

REACTIONS (6)
  - Pancytopenia [Unknown]
  - Tongue discolouration [Not Recovered/Not Resolved]
  - Cough [Not Recovered/Not Resolved]
  - Blood iron increased [Not Recovered/Not Resolved]
  - Epistaxis [Unknown]
  - Chronic sinusitis [Unknown]
